FAERS Safety Report 7215840-3 (Version None)
Quarter: 2011Q1

REPORT INFORMATION
  Report Type: 
  Country: None (occurrence: None)
  Receive Date: 20110107
  Receipt Date: 20101231
  Transmission Date: 20110831
  Serious: Yes (Hospitalization)
  Sender: FDA-Public Use
  Company Number: PHHO2010PL17938

PATIENT
  Sex: Female
  Weight: 53 kg

DRUGS (1)
  1. STI571/CGP57148B [Suspect]
     Indication: GASTROINTESTINAL STROMAL TUMOUR
     Dosage: 300 MG, UNK
     Route: 048
     Dates: start: 20100604, end: 20101229

REACTIONS (2)
  - DERMATITIS [None]
  - PITYRIASIS ROSEA [None]
